FAERS Safety Report 8517783-1 (Version None)
Quarter: 2012Q3

REPORT INFORMATION
  Report Type: 
  Country: None (occurrence: None)
  Receive Date: 20120718
  Receipt Date: 20120710
  Transmission Date: 20120928
  Serious: Yes (Life-Threatening, Hospitalization, Other)
  Sender: FDA-Public Use
  Company Number: FR-ASTRAZENECA-2012SE22839

PATIENT
  Age: 702 Month
  Sex: Female

DRUGS (17)
  1. LYRICA [Suspect]
     Indication: PAIN
     Route: 048
     Dates: start: 20100101, end: 20120315
  2. FOLIC ACID [Concomitant]
  3. ESCITALOPRAM [Concomitant]
     Indication: DEPRESSION
     Dates: start: 20120302, end: 20120315
  4. METHOTREXATE SODIUM [Suspect]
     Indication: RHEUMATOID ARTHRITIS
     Route: 058
     Dates: start: 19970101, end: 20120315
  5. ENBREL [Suspect]
     Indication: RHEUMATOID ARTHRITIS
     Route: 058
     Dates: start: 20111018, end: 20120303
  6. XANAX [Concomitant]
  7. AMITRIPTYLINE HCL [Suspect]
     Indication: DEPRESSION
     Dates: end: 20120303
  8. VALSARTAN [Concomitant]
  9. ZOLPIDEM TARTRATE [Concomitant]
  10. SULFARLEM [Concomitant]
  11. FELODIPINE [Concomitant]
  12. ACETAMINOPHEN [Concomitant]
  13. MABTHERA [Suspect]
     Indication: RHEUMATOID ARTHRITIS
     Dates: start: 20101001, end: 20111001
  14. ACTONEL [Suspect]
     Dates: start: 20100101, end: 20120315
  15. NEXIUM [Suspect]
     Route: 048
     Dates: start: 20100101, end: 20120315
  16. PREDNISONE TAB [Concomitant]
  17. VOLTAREN [Concomitant]

REACTIONS (9)
  - CHILLS [None]
  - OEDEMA PERIPHERAL [None]
  - DEPRESSION [None]
  - SUICIDE ATTEMPT [None]
  - PAIN [None]
  - ASTHENIA [None]
  - HEADACHE [None]
  - AGRANULOCYTOSIS [None]
  - AGITATION [None]
